FAERS Safety Report 22773354 (Version 2)
Quarter: 2023Q4

REPORT INFORMATION
  Report Type: Report from Study
  Country: US (occurrence: US)
  Receive Date: 20230801
  Receipt Date: 20231116
  Transmission Date: 20240109
  Serious: Yes (Other)
  Sender: FDA-Public Use
  Company Number: US-ABBVIE-4705820

PATIENT
  Age: 60 Year
  Sex: Male

DRUGS (3)
  1. RINVOQ [Suspect]
     Active Substance: UPADACITINIB
     Indication: Dermatitis atopic
     Route: 048
     Dates: start: 20221025, end: 20230726
  2. RINVOQ [Suspect]
     Active Substance: UPADACITINIB
     Indication: Dermatitis atopic
     Route: 048
  3. RINVOQ [Suspect]
     Active Substance: UPADACITINIB
     Indication: Dermatitis atopic
     Dosage: FIRST ADMIN DATE : 2023
     Route: 048

REACTIONS (12)
  - Shoulder arthroplasty [Not Recovered/Not Resolved]
  - Hypotension [Not Recovered/Not Resolved]
  - Seasonal allergy [Unknown]
  - General physical health deterioration [Not Recovered/Not Resolved]
  - Dermatitis atopic [Not Recovered/Not Resolved]
  - Bronchitis [Not Recovered/Not Resolved]
  - Shoulder fracture [Recovering/Resolving]
  - Impaired healing [Unknown]
  - Anaemia [Unknown]
  - Rotator cuff syndrome [Unknown]
  - Sinusitis [Not Recovered/Not Resolved]
  - Illness [Unknown]

NARRATIVE: CASE EVENT DATE: 20230701
